FAERS Safety Report 5533442-1 (Version None)
Quarter: 2007Q4

REPORT INFORMATION
  Report Type: 
  Country: None (occurrence: None)
  Receive Date: 20071204
  Receipt Date: 20071130
  Transmission Date: 20080405
  Serious: Yes (Life-Threatening)
  Sender: FDA-Public Use
  Company Number: IT-ASTRAZENECA-2007SE06271

PATIENT
  Age: 29180 Day
  Sex: Male

DRUGS (4)
  1. DIPRIVAN [Suspect]
     Indication: ANAESTHESIA
     Route: 042
     Dates: start: 20071107, end: 20071107
  2. SIRTAP [Suspect]
     Indication: ANTIBIOTIC PROPHYLAXIS
     Route: 042
     Dates: start: 20071107, end: 20071107
  3. FENTANEST [Suspect]
     Indication: ANAESTHESIA
     Route: 042
     Dates: start: 20071107, end: 20071107
  4. TERAZOSIN HCL [Concomitant]
     Indication: DYSURIA

REACTIONS (4)
  - CONDITION AGGRAVATED [None]
  - HAEMATURIA [None]
  - PLATELET COUNT DECREASED [None]
  - POST PROCEDURAL COMPLICATION [None]
